FAERS Safety Report 6609195-2 (Version None)
Quarter: 2010Q1

REPORT INFORMATION
  Report Type: 
  Country: None (occurrence: None)
  Receive Date: 20100224
  Receipt Date: 20100210
  Transmission Date: 20100710
  Serious: Yes (Hospitalization)
  Sender: FDA-Public Use
  Company Number: 2010GW000107

PATIENT
  Age: 68 Year
  Sex: Female
  Weight: 61.2356 kg

DRUGS (3)
  1. ALDARA [Suspect]
     Indication: BASAL CELL CARCINOMA
     Dosage: 5 PCT;5XW;TOP
     Route: 061
     Dates: start: 20100101, end: 20100209
  2. LOMOTIL [Concomitant]
  3. QUESTRAN [Concomitant]

REACTIONS (9)
  - APPLICATION SITE INFLAMMATION [None]
  - APPLICATION SITE RASH [None]
  - BALANCE DISORDER [None]
  - BAND NEUTROPHIL COUNT INCREASED [None]
  - DIZZINESS [None]
  - ELECTROENCEPHALOGRAM ABNORMAL [None]
  - HYPERHIDROSIS [None]
  - SINUS BRADYCARDIA [None]
  - SYNCOPE [None]
